FAERS Safety Report 25230940 (Version 4)
Quarter: 2025Q3

REPORT INFORMATION
  Report Type: Spontaneous
  Country: US (occurrence: US)
  Receive Date: 20250423
  Receipt Date: 20250714
  Transmission Date: 20251021
  Serious: No
  Sender: PFIZER
  Company Number: US-PFIZER INC-PV202500047416

PATIENT
  Age: 59 Year
  Sex: Female
  Weight: 108.9 kg

DRUGS (29)
  1. IBRANCE [Suspect]
     Active Substance: PALBOCICLIB
     Indication: Breast cancer female
     Route: 048
     Dates: start: 20250415
  2. IBRANCE [Suspect]
     Active Substance: PALBOCICLIB
     Route: 048
     Dates: start: 20250520
  3. INAVOLISIB [Concomitant]
     Active Substance: INAVOLISIB
     Dosage: TAKE 2 - 3 MG TABLETS
     Route: 048
     Dates: start: 20250415
  4. FULVESTRANT [Concomitant]
     Active Substance: FULVESTRANT
     Dates: start: 20250415
  5. FILGRASTIM [Concomitant]
     Active Substance: FILGRASTIM
     Dates: start: 20220926, end: 20221205
  6. CARBOPLATIN\PACLITAXEL [Concomitant]
     Active Substance: CARBOPLATIN\PACLITAXEL
     Dates: start: 20220816, end: 20221115
  7. ACETAMINOPHEN [Concomitant]
     Active Substance: ACETAMINOPHEN
     Route: 048
     Dates: start: 20221213
  8. ADVAIR HFA [Concomitant]
     Active Substance: FLUTICASONE PROPIONATE\SALMETEROL XINAFOATE
     Dosage: TWICE DAILY
     Dates: start: 20240301
  9. ALBUTEROL SULFATE [Concomitant]
     Active Substance: ALBUTEROL SULFATE
     Indication: Wheezing
     Route: 048
     Dates: start: 20250204
  10. ATORVASTATIN [Concomitant]
     Active Substance: ATORVASTATIN
     Dosage: 40 MG, DAILY
     Route: 048
     Dates: start: 20240109
  11. BORAGE OIL [Concomitant]
     Active Substance: BORAGE OIL
     Dosage: 12 MG, 3X/DAY
     Route: 048
     Dates: start: 20250325
  12. CELECOXIB [Concomitant]
     Active Substance: CELECOXIB
     Dosage: 100 MG, 2X/DAY
     Route: 048
     Dates: start: 20240109
  13. CYCLOBENZAPRINE HYDROCHLORIDE [Concomitant]
     Active Substance: CYCLOBENZAPRINE HYDROCHLORIDE
     Indication: Muscle spasms
     Route: 048
     Dates: start: 20250225
  14. FLONASE ALLERGY RELIEF [Concomitant]
     Active Substance: FLUTICASONE PROPIONATE
     Dosage: 2 SPRAYS EACH NOSTRIL TWICE A DAY
     Route: 045
     Dates: start: 20230103
  15. ACETAMINOPHEN\HYDROCODONE [Concomitant]
     Active Substance: ACETAMINOPHEN\HYDROCODONE
     Indication: Pain
     Route: 048
     Dates: start: 20250225
  16. IBUPROFEN [Concomitant]
     Active Substance: IBUPROFEN
     Dates: start: 20190711
  17. LEVOTHYROXINE [Concomitant]
     Active Substance: LEVOTHYROXINE
     Dosage: 137 UG, DAILY
     Route: 048
     Dates: start: 20240301
  18. LOMOTIL [Concomitant]
     Active Substance: ATROPINE SULFATE\DIPHENOXYLATE HYDROCHLORIDE
     Dates: start: 20250513
  19. LOMOTIL [Concomitant]
     Active Substance: ATROPINE SULFATE\DIPHENOXYLATE HYDROCHLORIDE
     Dates: start: 20250528
  20. LORATADINE [Concomitant]
     Active Substance: LORATADINE
     Dates: start: 20190711
  21. METFORMIN [Concomitant]
     Active Substance: METFORMIN HYDROCHLORIDE
     Dates: start: 20250513
  22. METFORMIN [Concomitant]
     Active Substance: METFORMIN HYDROCHLORIDE
     Dosage: TAKE TWO TABLETS BY MOUTH EVERY MORNING AND TAKE ONE TABLET BY MOUTH EVERY EVENING
     Route: 048
     Dates: start: 20250602
  23. OMEPRAZOLE [Concomitant]
     Active Substance: OMEPRAZOLE
     Dosage: DELAYED RELEASE
     Route: 048
     Dates: start: 20190711
  24. ONDANSETRON HYDROCHLORIDE [Concomitant]
     Active Substance: ONDANSETRON HYDROCHLORIDE
     Indication: Nausea
     Route: 048
     Dates: start: 20250602
  25. PENTOXIFYLLINE [Concomitant]
     Active Substance: PENTOXIFYLLINE
     Dosage: EXTENDED RELEASE
     Route: 048
     Dates: start: 20250525
  26. PROVENTIL HFA [Concomitant]
     Active Substance: ALBUTEROL SULFATE
     Dates: start: 20221213
  27. TUMS [Concomitant]
     Active Substance: CALCIUM CARBONATE
     Dates: start: 20190711
  28. VENLAFAXINE HCL [Concomitant]
     Active Substance: VENLAFAXINE HYDROCHLORIDE
     Dosage: TAKE ONE CAPSULE BY MOUTH EVERY DAY
     Route: 048
     Dates: start: 20250507
  29. VITAMIN E-400 [Concomitant]
     Dosage: 268 MG, 2X/DAY
     Route: 048
     Dates: start: 20250325

REACTIONS (4)
  - Blood glucose increased [Recovering/Resolving]
  - Nausea [Recovered/Resolved]
  - Diarrhoea [Not Recovered/Not Resolved]
  - Fatigue [Unknown]

NARRATIVE: CASE EVENT DATE: 20250101
